FAERS Safety Report 8361454-1 (Version None)
Quarter: 2012Q2

REPORT INFORMATION
  Report Type: 
  Country: None (occurrence: None)
  Receive Date: 20120515
  Receipt Date: 20120509
  Transmission Date: 20120825
  Serious: Yes (Hospitalization)
  Sender: FDA-Public Use
  Company Number: US-CELGENEUS-163-21880-12051065

PATIENT
  Sex: Female

DRUGS (9)
  1. REVLIMID [Suspect]
     Dosage: 25 MILLIGRAM
     Route: 048
     Dates: start: 20111006
  2. LABETALOL HCL [Concomitant]
     Route: 065
  3. LAMOTRIGINE [Concomitant]
     Route: 065
  4. LYRICA [Concomitant]
     Route: 065
  5. COUMADIN [Concomitant]
     Route: 065
  6. ALDACTONE [Concomitant]
  7. MORPHINE SULFATE [Concomitant]
     Route: 065
  8. AMITRIPTYLINE HCL [Concomitant]
     Route: 065
  9. OXYCODONE HCL AND ACETAMINOPHEN [Concomitant]
     Route: 065

REACTIONS (1)
  - RENAL DISORDER [None]
